APPROVED DRUG PRODUCT: MICONAZOLE 7
Active Ingredient: MICONAZOLE NITRATE
Strength: 2%
Dosage Form/Route: CREAM;VAGINAL
Application: A074164 | Product #001
Applicant: P AND L DEVELOPMENT LLC
Approved: Mar 29, 1996 | RLD: No | RS: No | Type: OTC